FAERS Safety Report 25139304 (Version 3)
Quarter: 2025Q2

REPORT INFORMATION
  Report Type: Other
  Country: CA (occurrence: CA)
  Receive Date: 20250331
  Receipt Date: 20250624
  Transmission Date: 20250717
  Serious: Yes (Other)
  Sender: APOTEX
  Company Number: CA-APOTEX-2025AP003855

PATIENT
  Sex: Male

DRUGS (2)
  1. TERIFLUNOMIDE [Suspect]
     Active Substance: TERIFLUNOMIDE
     Indication: Relapsing-remitting multiple sclerosis
     Dosage: 14 MILLIGRAM, QD
     Route: 048
  2. TERIFLUNOMIDE [Suspect]
     Active Substance: TERIFLUNOMIDE
     Dosage: 14 MILLIGRAM, QD
     Route: 048

REACTIONS (14)
  - Asthenia [Unknown]
  - Balance disorder [Unknown]
  - Cataract [Unknown]
  - Facial pain [Unknown]
  - Fall [Unknown]
  - Fatigue [Unknown]
  - Gait disturbance [Unknown]
  - Heart rate increased [Unknown]
  - Malaise [Unknown]
  - Product availability issue [Unknown]
  - Product dose omission issue [Unknown]
  - Rash pruritic [Unknown]
  - Treatment noncompliance [Unknown]
  - Drug ineffective [Unknown]
